FAERS Safety Report 9589238 (Version 1)
Quarter: 2013Q4

REPORT INFORMATION
  Report Type: Spontaneous
  Country: US (occurrence: US)
  Receive Date: 20131003
  Receipt Date: 20131003
  Transmission Date: 20140711
  Serious: No
  Sender: FDA-Public Use
  Company Number: US-AMGEN-USASP2012069479

PATIENT
  Sex: Female
  Weight: 72.56 kg

DRUGS (16)
  1. ENBREL [Suspect]
     Indication: PSORIATIC ARTHROPATHY
     Dosage: 50 MG, QWK
     Route: 058
  2. CORTISOL                           /00014602/ [Concomitant]
     Dosage: UNK
  3. OPTIVAR [Concomitant]
     Dosage: 0.05 %, UNK
  4. SIMVASTATIN [Concomitant]
     Dosage: 10 MG, UNK
  5. LANSOPRAZOLE [Concomitant]
     Dosage: 30 MG, DR UNK
  6. PREDNISONE                         /00044702/ [Concomitant]
     Dosage: 10 MG, UNK
  7. FENOFIBRAT [Concomitant]
     Dosage: 134 MG, UNK
  8. BUPROPION [Concomitant]
     Dosage: 100 MG, UNK
  9. CITRACAL + D                       /01438101/ [Concomitant]
     Dosage: UNK
  10. FISH OIL [Concomitant]
     Dosage: UNK
  11. MULTIVITAMIN                       /00097801/ [Concomitant]
     Dosage: UNK
  12. ASPIRE [Concomitant]
     Dosage: 81 MG, EC UNK
  13. CO Q-10 [Concomitant]
     Dosage: 100 MG, UNK
  14. ADVAIR HFA [Concomitant]
     Dosage: AER 115/21UNK
  15. VENTOLIN HFA [Concomitant]
     Dosage: AER UNK
  16. MUCINEX DM [Concomitant]
     Dosage: 20-400 DM LIQ UNK,

REACTIONS (3)
  - Pain in extremity [Unknown]
  - Arthralgia [Unknown]
  - Rhinorrhoea [Unknown]
